FAERS Safety Report 14126999 (Version 1)
Quarter: 2017Q4

REPORT INFORMATION
  Report Type: Report from Study
  Country: None (occurrence: US)
  Receive Date: 20171026
  Receipt Date: 20171026
  Transmission Date: 20180321
  Serious: Yes (Hospitalization)
  Sender: FDA-Public Use
  Company Number: US-ABBVIE-17K-163-2112547-00

PATIENT
  Age: 44 Year
  Sex: Male
  Weight: 163.44 kg

DRUGS (3)
  1. ANDROGEL [Suspect]
     Active Substance: TESTOSTERONE
     Dosage: 4 PUMPS DAILY
     Route: 061
     Dates: start: 2017
  2. ANDROGEL [Suspect]
     Active Substance: TESTOSTERONE
     Indication: BLOOD TESTOSTERONE DECREASED
     Dosage: 4 PUMPS DAILY, TAKEN OFF DUE TO PRE-EXISTING HEART CONDITIONS
     Route: 061
     Dates: start: 2014, end: 2015
  3. ANDROGEL [Suspect]
     Active Substance: TESTOSTERONE
     Dosage: 4 PUMPS DAILY,  WAS OFF ANDROGEL AS IT WAS NOT PRESENT AT THE HOSPITAL FOR FOUR DAYS.
     Route: 061
     Dates: start: 201705, end: 201709

REACTIONS (2)
  - Coronary arterial stent insertion [Unknown]
  - Coronary artery occlusion [Recovering/Resolving]

NARRATIVE: CASE EVENT DATE: 201709
